FAERS Safety Report 10489931 (Version 2)
Quarter: 2014Q4

REPORT INFORMATION
  Report Type: Spontaneous
  Country: US (occurrence: ES)
  Receive Date: 20141002
  Receipt Date: 20141008
  Transmission Date: 20150528
  Serious: No
  Sender: FDA-Public Use
  Company Number: ES-FRI-1000071151

PATIENT
  Sex: Male

DRUGS (2)
  1. ASENAPINE [Suspect]
     Active Substance: ASENAPINE
     Dosage: 5 MG
     Route: 060
     Dates: start: 20140924, end: 2014
  2. ASENAPINE [Suspect]
     Active Substance: ASENAPINE
     Dosage: 10 MG
     Route: 060
     Dates: start: 20140922, end: 20140924

REACTIONS (1)
  - Drug hypersensitivity [Recovered/Resolved]

NARRATIVE: CASE EVENT DATE: 20140923
